FAERS Safety Report 19020425 (Version 1)
Quarter: 2021Q1

REPORT INFORMATION
  Report Type: Spontaneous
  Country: US (occurrence: US)
  Receive Date: 20210317
  Receipt Date: 20210317
  Transmission Date: 20210420
  Serious: Yes (Other)
  Sender: FDA-Public Use
  Company Number: US-PARI RESPIRATORY EQUIPMENT, INC.-2021PAR00015

PATIENT
  Age: 12 Year
  Sex: Male
  Weight: 27.21 kg

DRUGS (18)
  1. KITABIS PAK [Suspect]
     Active Substance: TOBRAMYCIN
     Indication: PNEUMONIA
  2. ATIVAN [Concomitant]
     Active Substance: LORAZEPAM
  3. TRAZODONE HYDROCHLORIDE. [Concomitant]
     Active Substance: TRAZODONE HYDROCHLORIDE
  4. NORVASC [Concomitant]
     Active Substance: AMLODIPINE BESYLATE
  5. GABAPENTIN. [Concomitant]
     Active Substance: GABAPENTIN
  6. KEPPRA [Concomitant]
     Active Substance: LEVETIRACETAM
  7. CLONIDINE. [Concomitant]
     Active Substance: CLONIDINE
  8. SINEMET [Concomitant]
     Active Substance: CARBIDOPA\LEVODOPA
  9. HYDROCORTISONE?ALOE [Concomitant]
  10. NEXIUM [Concomitant]
     Active Substance: ESOMEPRAZOLE MAGNESIUM
  11. ENALAPRIL?HYDROCHLOROTHIAZIDE [Concomitant]
     Active Substance: ENALAPRIL\HYDROCHLOROTHIAZIDE
  12. KITABIS PAK [Suspect]
     Active Substance: TOBRAMYCIN
     Indication: TRACHEOSTOMY
  13. CLONIDINE HCL [Concomitant]
     Active Substance: CLONIDINE HYDROCHLORIDE
  14. KITABIS PAK [Suspect]
     Active Substance: TOBRAMYCIN
     Indication: PSEUDOMONAS INFECTION
     Dosage: 300 MG (1 AMPULE) INHALED VIA TRACH, 2X/DAY (28 DAYS ON, 28 DAYS OFF)
     Dates: start: 201904
  15. VALIUM [Concomitant]
     Active Substance: DIAZEPAM
  16. PHENOBARBITAL. [Concomitant]
     Active Substance: PHENOBARBITAL
  17. PULMICORT NEB [Concomitant]
  18. ALBUTEROL SULFATE. [Concomitant]
     Active Substance: ALBUTEROL SULFATE

REACTIONS (5)
  - Heart rate increased [Recovered/Resolved]
  - Pneumonia [Recovered/Resolved]
  - Generalised tonic-clonic seizure [Recovered/Resolved]
  - Febrile convulsion [Recovered/Resolved]
  - Off label use [Not Recovered/Not Resolved]

NARRATIVE: CASE EVENT DATE: 201904
